FAERS Safety Report 9229415 (Version 4)
Quarter: 2014Q4

REPORT INFORMATION
  Report Type: Spontaneous
  Country: US (occurrence: US)
  Receive Date: 20130412
  Receipt Date: 20141028
  Transmission Date: 20150529
  Serious: Yes (Hospitalization, Other)
  Sender: FDA-Public Use
  Company Number: US-ASTELLAS-2013US002681

PATIENT
  Age: 67 Year
  Sex: Female

DRUGS (1)
  1. PROGRAF [Suspect]
     Active Substance: TACROLIMUS\TACROLIMUS ANHYDROUS
     Indication: LUNG TRANSPLANT
     Route: 048
     Dates: start: 20040810

REACTIONS (10)
  - Sinusitis [Unknown]
  - Pneumonia viral [Unknown]
  - Lung transplant rejection [Recovered/Resolved]
  - Off label use [Unknown]
  - Ankle fracture [Recovering/Resolving]
  - Femur fracture [Recovering/Resolving]
  - Renal disorder [Unknown]
  - Upper limb fracture [Recovering/Resolving]
  - Fall [Unknown]
  - Blood creatinine increased [Unknown]

NARRATIVE: CASE EVENT DATE: 2010
